FAERS Safety Report 5338520-8 (Version None)
Quarter: 2007Q2

REPORT INFORMATION
  Report Type: 
  Country: None (occurrence: None)
  Receive Date: 20070405
  Receipt Date: 20061103
  Transmission Date: 20071010
  Serious: No
  Sender: FDA-Public Use
  Company Number: US200611001117

PATIENT
  Age: 66 Year
  Sex: Female

DRUGS (4)
  1. CYMBALTA [Suspect]
     Dosage: 30 MG ORAL
     Route: 048
     Dates: start: 20061013, end: 20061103
  2. ATENOLOL [Concomitant]
  3. CHLORPHENIRAMINE MALEATE [Concomitant]
  4. LEXAPRO /USA/ (ESCITALOPRAM) [Concomitant]

REACTIONS (1)
  - FALL [None]
